FAERS Safety Report 26051561 (Version 1)
Quarter: 2025Q4

REPORT INFORMATION
  Report Type: Spontaneous
  Country: EU (occurrence: EU)
  Receive Date: 20251117
  Receipt Date: 20251117
  Transmission Date: 20260118
  Serious: Yes (Other)
  Sender: TEVA
  Company Number: None

PATIENT
  Age: 70 Year
  Sex: Female
  Weight: 69 kg

DRUGS (1)
  1. NAPROXEN [Suspect]
     Active Substance: NAPROXEN
     Indication: Tendonitis
     Dosage: 2 X PER DAY, NAPROXEN TABLET 500MG / BRAND NAME NOT SPECIFIED
     Route: 048
     Dates: start: 20250602

REACTIONS (1)
  - Toxic skin eruption [Recovered/Resolved]
